FAERS Safety Report 5284060-4 (Version None)
Quarter: 2007Q1

REPORT INFORMATION
  Report Type: 
  Country: None (occurrence: None)
  Receive Date: 20070327
  Receipt Date: 20070319
  Transmission Date: 20070707
  Serious: Yes (Hospitalization)
  Sender: FDA-Public Use
  Company Number: JPI-P-000930

PATIENT
  Age: 4 Decade
  Sex: Female

DRUGS (4)
  1. XYREM [Suspect]
     Indication: FIBROMYALGIA
     Dosage: ORAL
     Route: 048
     Dates: start: 20050401, end: 20050801
  2. XYREM [Suspect]
     Indication: INSOMNIA
     Dosage: ORAL
     Route: 048
     Dates: start: 20050401, end: 20050801
  3. NATURAL HORMONES (HORMONES NOS) [Concomitant]
  4. PAIN MEDICATION (TROLAMINE SALICYLATE) [Concomitant]

REACTIONS (3)
  - AMNESIA [None]
  - DELUSION [None]
  - PSYCHOTIC DISORDER [None]
